FAERS Safety Report 12432865 (Version 1)
Quarter: 2016Q2

REPORT INFORMATION
  Report Type: Spontaneous
  Country: FR (occurrence: FR)
  Receive Date: 20160603
  Receipt Date: 20160603
  Transmission Date: 20160815
  Serious: Yes (Congenital Anomaly, Other)
  Sender: FDA-Public Use
  Company Number: FR-GE HEALTHCARE MEDICAL DIAGNOSTICS-N131-PR-1606L-0007

PATIENT

DRUGS (8)
  1. [I-123] SODIUM IODIDE SOLUTION [Suspect]
     Active Substance: SODIUM IODIDE I-123
     Indication: DIAGNOSTIC PROCEDURE
  2. TECHNETIUM TC-99M GENERATOR [Suspect]
     Active Substance: TECHNETIUM TC-99M
     Indication: PRODUCT USED FOR UNKNOWN INDICATION
     Dosage: DOSE NOT REPORTED
     Route: 065
  3. [I-131] SODIUM IODIDE [Suspect]
     Active Substance: SODIUM IODIDE I-131
     Indication: PRODUCT USED FOR UNKNOWN INDICATION
     Dosage: DOSE NOT REPORTED
     Route: 065
  4. THALLOUS CHLORIDE TL201 [Suspect]
     Active Substance: THALLOUS CHLORIDE TL-201
     Indication: DIAGNOSTIC PROCEDURE
  5. [I-123] SODIUM IODIDE SOLUTION [Suspect]
     Active Substance: SODIUM IODIDE I-123
     Indication: PRODUCT USED FOR UNKNOWN INDICATION
     Dosage: DOSE NOT REPORTED
     Route: 065
  6. THALLOUS CHLORIDE TL201 [Suspect]
     Active Substance: THALLOUS CHLORIDE TL-201
     Indication: PRODUCT USED FOR UNKNOWN INDICATION
     Dosage: DOSE NOT REPORTED
     Route: 065
  7. [I-131] SODIUM IODIDE [Suspect]
     Active Substance: SODIUM IODIDE I-131
     Indication: DIAGNOSTIC PROCEDURE
  8. TECHNETIUM TC-99M GENERATOR [Suspect]
     Active Substance: TECHNETIUM TC-99M
     Indication: DIAGNOSTIC PROCEDURE

REACTIONS (3)
  - Foetal malformation [Recovered/Resolved]
  - Foetal growth restriction [Recovered/Resolved]
  - Foetal exposure during pregnancy [Recovered/Resolved]
